FAERS Safety Report 12638489 (Version 2)
Quarter: 2016Q4

REPORT INFORMATION
  Report Type: Spontaneous
  Country: US (occurrence: US)
  Receive Date: 20160809
  Receipt Date: 20161108
  Transmission Date: 20170207
  Serious: No
  Sender: FDA-Public Use
  Company Number: US-SA-2016SA132178

PATIENT
  Age: 75 Year
  Sex: Female
  Weight: 55.33 kg

DRUGS (15)
  1. PRALUENT [Suspect]
     Active Substance: ALIROCUMAB
     Indication: LOW DENSITY LIPOPROTEIN INCREASED
     Route: 065
     Dates: start: 20160714, end: 20160714
  2. PRALUENT [Suspect]
     Active Substance: ALIROCUMAB
     Indication: BLOOD CHOLESTEROL INCREASED
     Route: 065
     Dates: start: 20160714, end: 20160714
  3. ALIROCUMAB PREFILLED PEN [Concomitant]
     Active Substance: ALIROCUMAB
     Indication: LOW DENSITY LIPOPROTEIN INCREASED
     Route: 065
     Dates: start: 20160714, end: 20160714
  4. LANTUS [Concomitant]
     Active Substance: INSULIN GLARGINE
  5. NOVOLOG [Concomitant]
     Active Substance: INSULIN ASPART
     Dosage: TREATMENT START DATE: MANY YEARS?PARADIGM 522 INSULIN PUMP - APPROX 16 UNITS DAILY
  6. COQ10 [Concomitant]
     Active Substance: UBIDECARENONE
     Dosage: TREATMENT START DATE: MANY YEARS
  7. CLOBETASOL PROPIONATE. [Concomitant]
     Active Substance: CLOBETASOL PROPIONATE
  8. MINERALS NOS/VITAMINS NOS [Concomitant]
     Dosage: TREATMENT START DATE: MANY YEARS
  9. CRANBERRY EXTRACT [Concomitant]
     Active Substance: CRANBERRY JUICE
     Dosage: CRANBERRY EXTRACT - 300MG 2-3X/DAY?TREATMENT START DATE: MANY YEARS
  10. ASPIRIN. [Concomitant]
     Active Substance: ASPIRIN
     Dosage: TREATMENT START DATE: MANY YEARS
  11. ESTRACE [Concomitant]
     Active Substance: ESTRADIOL
     Dosage: PEA-SIZED AMOUNT APPLIED EXTERNALLY TO VULVA, DAILY?TREATMENT START DATE: MANY YEARS
     Dates: start: 20110329
  12. FLAX SEED [Concomitant]
     Active Substance: FLAX SEED
     Dosage: FLAX SEED - 2 TABLESPOONS DAILY?TREATMENT START DATE: MANY YEARS
  13. ALIROCUMAB PREFILLED PEN [Concomitant]
     Active Substance: ALIROCUMAB
     Indication: BLOOD CHOLESTEROL INCREASED
     Route: 065
     Dates: start: 20160714, end: 20160714
  14. LEVOTHYROXINE. [Concomitant]
     Active Substance: LEVOTHYROXINE
     Dosage: TREATMENT START DATE: MANY YEARS?25 MCG DAILY, 1/2 HOUR BEFORE BREAKFAST
  15. VAGIFEM [Concomitant]
     Active Substance: ESTRADIOL
     Dosage: TREATMENT START DATE: MANY YEARS

REACTIONS (10)
  - Irritability [Recovering/Resolving]
  - Dizziness [Unknown]
  - Disturbance in attention [Recovering/Resolving]
  - Paranasal sinus discomfort [Recovering/Resolving]
  - Head discomfort [Recovered/Resolved]
  - Heart rate increased [Recovered/Resolved]
  - Therapeutic response unexpected [Unknown]
  - Dysgeusia [Unknown]
  - Feeling abnormal [Recovering/Resolving]
  - Nausea [Recovered/Resolved]

NARRATIVE: CASE EVENT DATE: 201607
